FAERS Safety Report 6846852-7 (Version None)
Quarter: 2010Q3

REPORT INFORMATION
  Report Type: 
  Country: None (occurrence: None)
  Receive Date: 20100712
  Receipt Date: 20100629
  Transmission Date: 20110219
  Serious: Yes (Other)
  Sender: FDA-Public Use
  Company Number: 010335

PATIENT
  Age: 49 Year
  Sex: Male

DRUGS (3)
  1. BUSULFEX [Suspect]
     Indication: CHEMOTHERAPY
     Dosage: 2.67 MG/KG, DAILY DOSE, INTRAVENOUS
     Route: 042
  2. THIOTEPA [Concomitant]
  3. CYCLOPHTOSPHAMIDE (CYCLOPHOSPHAMIDE) [Concomitant]

REACTIONS (5)
  - DIARRHOEA [None]
  - FEBRILE NEUTROPENIA [None]
  - INFECTION [None]
  - MUCOSAL INFLAMMATION [None]
  - RENAL FAILURE [None]
